FAERS Safety Report 16123902 (Version 2)
Quarter: 2019Q2

REPORT INFORMATION
  Report Type: Spontaneous
  Country: US (occurrence: US)
  Receive Date: 20190327
  Receipt Date: 20190402
  Transmission Date: 20190711
  Serious: No
  Sender: FDA-Public Use
  Company Number: US-009507513-1903USA007981

PATIENT
  Sex: Female

DRUGS (2)
  1. PUREGON PEN [Suspect]
     Active Substance: FOLLITROPIN
     Indication: ASSISTED FERTILISATION
     Dosage: UNK
     Route: 058
     Dates: start: 20190315
  2. FOLLISTIM AQ [Suspect]
     Active Substance: FOLLITROPIN
     Indication: ASSISTED FERTILISATION
     Dosage: 75 INTERNATIONAL UNIT
     Route: 058
     Dates: start: 20190315

REACTIONS (5)
  - Product leakage [Unknown]
  - Product quality issue [Unknown]
  - Circumstance or information capable of leading to medication error [Unknown]
  - Crying [Unknown]
  - Poor quality device used [Unknown]

NARRATIVE: CASE EVENT DATE: 201903
